FAERS Safety Report 6499924-3 (Version None)
Quarter: 2009Q4

REPORT INFORMATION
  Report Type: 
  Country: None (occurrence: None)
  Receive Date: 20091216
  Receipt Date: 20091204
  Transmission Date: 20100525
  Serious: Yes (Other)
  Sender: FDA-Public Use
  Company Number: FR-RANBAXY-2009RR-29603

PATIENT
  Age: 70 Year
  Sex: Female

DRUGS (5)
  1. LAMOTRIGINE [Suspect]
     Dosage: 50 MG, UNK
  2. PHENOBARBITAL [Suspect]
     Indication: EPILEPSY
     Dosage: 200 MG, UNK
  3. LEVETIRACETAM [Concomitant]
  4. CLONAZEPAM [Concomitant]
  5. LAMOTRIGINE [Concomitant]
     Dosage: 25 MG, UNK

REACTIONS (1)
  - DRUG RASH WITH EOSINOPHILIA AND SYSTEMIC SYMPTOMS [None]
